FAERS Safety Report 6252102-5 (Version None)
Quarter: 2009Q2

REPORT INFORMATION
  Report Type: 
  Country: None (occurrence: None)
  Receive Date: 20090630
  Receipt Date: 20061201
  Transmission Date: 20091009
  Serious: Yes (Death)
  Sender: FDA-Public Use
  Company Number: US-ROCHE-638974

PATIENT
  Sex: Male

DRUGS (6)
  1. ENFUVIRTIDE [Suspect]
     Indication: HIV INFECTION
     Route: 065
     Dates: start: 20060828, end: 20061211
  2. NORVIR [Concomitant]
     Dosage: FREQUENCY: DAILY (QD)
     Dates: start: 20060828, end: 20061211
  3. PREZISTA [Concomitant]
     Dates: start: 20060828, end: 20061211
  4. VIREAD [Concomitant]
     Dosage: FREQUENCY: DAILY (QD)
     Dates: start: 20060828, end: 20061211
  5. DIFLUCAN [Concomitant]
     Dosage: FREQUENCY: EVERY WEEK (QWK)
     Dates: start: 20060828, end: 20061211
  6. VANCOMYCIN [Concomitant]
     Dates: start: 20080912, end: 20080919

REACTIONS (1)
  - PNEUMOCYSTIS JIROVECI PNEUMONIA [None]
